FAERS Safety Report 5490250-8 (Version None)
Quarter: 2007Q4

REPORT INFORMATION
  Report Type: 
  Country: None (occurrence: None)
  Receive Date: 20071015
  Receipt Date: 20070618
  Transmission Date: 20080405
  Serious: No
  Sender: FDA-Public Use
  Company Number: 2007SP002277

PATIENT
  Age: 81 Year
  Sex: Male
  Weight: 77.1115 kg

DRUGS (10)
  1. LUNESTA [Suspect]
     Indication: INSOMNIA
     Dosage: 3 MG; ORAL
     Route: 048
     Dates: start: 20070617
  2. AMLODIPINE [Concomitant]
  3. METOPROLOL [Concomitant]
  4. ATORVASTATIN CALCIUM [Concomitant]
  5. ACIPHEX [Concomitant]
  6. XIBROM [Concomitant]
  7. ZYMAR [Concomitant]
  8. PRED FORTE [Concomitant]
  9. LORAZEPAM [Concomitant]
  10. TEMAZEPAM [Concomitant]

REACTIONS (4)
  - DIZZINESS [None]
  - DRUG INEFFECTIVE [None]
  - INSOMNIA [None]
  - THINKING ABNORMAL [None]
